FAERS Safety Report 16380626 (Version 1)
Quarter: 2019Q2

REPORT INFORMATION
  Report Type: Report from Study
  Country: MX (occurrence: MX)
  Receive Date: 20190601
  Receipt Date: 20190601
  Transmission Date: 20190711
  Serious: Yes (Death, Hospitalization)
  Sender: FDA-Public Use
  Company Number: MX-UCBSA-2017032872

PATIENT
  Age: 52 Year
  Sex: Female
  Weight: 75 kg

DRUGS (17)
  1. LEVODOPA/CARBIDOPA [Concomitant]
     Active Substance: CARBIDOPA\LEVODOPA
     Indication: PARKINSON^S DISEASE
     Dosage: 250MG/25MG (3/4 OF A TABLET AT 7AM, ? OF A TABLET AT 10AM, ? OF A TABLET AT 1PM, ? OF A TABLET AT 3P
     Dates: start: 2006
  2. TELMISARTAN. [Concomitant]
     Active Substance: TELMISARTAN
     Indication: BLOOD PRESSURE MEASUREMENT
     Dosage: 40 MG (1 TABLET/24 HRS)
     Dates: start: 2015
  3. PREDNISONE. [Concomitant]
     Active Substance: PREDNISONE
     Indication: RHEUMATOID ARTHRITIS
     Dosage: 5 MG, ONCE DAILY (QD)
     Dates: start: 2013
  4. EZETIMIBE/SIMVASTATIN [Concomitant]
     Active Substance: EZETIMIBE\SIMVASTATIN
     Indication: BLOOD CHOLESTEROL
     Dosage: 10MG/20MG (1 TABLET/24 HRS
     Dates: start: 2016
  5. ROTIGOTINE [Suspect]
     Active Substance: ROTIGOTINE
     Dosage: 2 MG, ONCE DAILY (QD)
     Route: 062
     Dates: start: 20161114, end: 201611
  6. ATORVASTATIN [Concomitant]
     Active Substance: ATORVASTATIN
     Indication: BLOOD TRIGLYCERIDES
     Dosage: 20 MG, ONCE DAILY (QD)
     Dates: start: 2016
  7. METFORMIN [Concomitant]
     Active Substance: METFORMIN HYDROCHLORIDE
     Indication: BLOOD GLUCOSE INCREASED
     Dosage: 425 MG, ONCE DAILY (QD)
     Dates: start: 2014
  8. SIFROL [Concomitant]
     Active Substance: PRAMIPEXOLE
     Indication: PRODUCT USED FOR UNKNOWN INDICATION
     Dosage: 0.5MG (1/2 OF A TABLET AT 7AM, 10AM, 1PM AND 5PM
     Dates: start: 2006, end: 20161114
  9. ROTIGOTINE [Suspect]
     Active Substance: ROTIGOTINE
     Dosage: 8 MILLIGRAM, ONCE DAILY (QD)
     Route: 062
     Dates: end: 20190413
  10. CLONAZEPAM. [Concomitant]
     Active Substance: CLONAZEPAM
     Indication: INSOMNIA
     Dosage: 2 MG, ONCE DAILY (QD)
     Dates: start: 2015
  11. ROTIGOTINE [Suspect]
     Active Substance: ROTIGOTINE
     Indication: PARKINSON^S DISEASE
     Dosage: UNK
     Route: 062
     Dates: start: 2004
  12. ROTIGOTINE [Suspect]
     Active Substance: ROTIGOTINE
     Dosage: 4 MG, ONCE DAILY (QD)
     Route: 062
     Dates: start: 201611, end: 2016
  13. ROTIGOTINE [Suspect]
     Active Substance: ROTIGOTINE
     Dosage: 8 MG, ONCE DAILY (QD)
     Route: 062
     Dates: start: 201703
  14. ROTIGOTINE [Suspect]
     Active Substance: ROTIGOTINE
     Dosage: APPLY THE PATCH EVERY 3 DAYS
     Route: 062
     Dates: start: 201703
  15. PRAZOSINA [Concomitant]
     Indication: BLOOD PRESSURE MEASUREMENT
     Dosage: 0.5 MG, ONCE DAILY (QD)
     Dates: start: 2016
  16. ROTIGOTINE [Suspect]
     Active Substance: ROTIGOTINE
     Dosage: 6 MG, ONCE DAILY (QD)
     Route: 062
     Dates: start: 201612
  17. METOPROLOL. [Concomitant]
     Active Substance: METOPROLOL
     Indication: BLOOD PRESSURE MEASUREMENT
     Dosage: 100 MG, ONCE DAILY (QD)
     Dates: start: 2015

REACTIONS (8)
  - Application site pain [Not Recovered/Not Resolved]
  - Off label use [Unknown]
  - Application site erythema [Recovered/Resolved]
  - Weight decreased [Unknown]
  - Hypersensitivity [Not Recovered/Not Resolved]
  - Cerebral infarction [Fatal]
  - Depression [Unknown]
  - Hypoaesthesia [Unknown]

NARRATIVE: CASE EVENT DATE: 2016
